FAERS Safety Report 22214717 (Version 4)
Quarter: 2024Q4

REPORT INFORMATION
  Report Type: Report from Study
  Country: US (occurrence: US)
  Receive Date: 20230415
  Receipt Date: 20241013
  Transmission Date: 20250114
  Serious: Yes (Hospitalization, Other)
  Sender: ABBVIE
  Company Number: US-ABBVIE-4726200

PATIENT
  Age: 55 Year
  Sex: Male
  Weight: 73 kg

DRUGS (1)
  1. SKYRIZI [Suspect]
     Active Substance: RISANKIZUMAB-RZAA
     Indication: Psoriasis
     Dosage: FORM STRENGTH : 150 MG
     Route: 058
     Dates: start: 20220831

REACTIONS (1)
  - Foot deformity [Recovering/Resolving]

NARRATIVE: CASE EVENT DATE: 20240901
